FAERS Safety Report 8939265 (Version 4)
Quarter: 2013Q3

REPORT INFORMATION
  Report Type: Spontaneous
  Country: US (occurrence: US)
  Receive Date: 20121203
  Receipt Date: 20130923
  Transmission Date: 20140515
  Serious: Yes (Hospitalization)
  Sender: FDA-Public Use
  Company Number: US-PFIZER INC-2012301101

PATIENT
  Age: 57 Year
  Sex: Male
  Weight: 88.44 kg

DRUGS (5)
  1. NEURONTIN [Suspect]
     Indication: PAIN IN EXTREMITY
     Dosage: 800 MG, 3X/DAY
     Dates: start: 2011, end: 2012
  2. NEURONTIN [Suspect]
     Indication: NEURALGIA
     Dosage: 800 MG, 3X/DAY
     Dates: start: 2011, end: 201309
  3. PRISTIQ [Suspect]
     Indication: NERVOUSNESS
     Dosage: 50 MG, DAILY
     Dates: start: 2012
  4. TRAMADOL HYDROCHLORIDE [Suspect]
     Indication: NEURALGIA
     Dosage: 50 MG, EVERY 6 HOURS
     Dates: start: 2011, end: 2012
  5. NOVOLOG MIX 70/30 [Concomitant]
     Indication: BLOOD GLUCOSE INCREASED
     Dosage: UNK, 3X/DAY

REACTIONS (4)
  - Vomiting [Unknown]
  - Pain in extremity [Not Recovered/Not Resolved]
  - Gait disturbance [Not Recovered/Not Resolved]
  - Pain [Not Recovered/Not Resolved]
